FAERS Safety Report 8573817-X (Version None)
Quarter: 2012Q3

REPORT INFORMATION
  Report Type: 
  Country: None (occurrence: None)
  Receive Date: 20120806
  Receipt Date: 20110801
  Transmission Date: 20120928
  Serious: No
  Sender: FDA-Public Use
  Company Number: US-GLAXOSMITHKLINE-A0939274A

PATIENT
  Age: 82 Year
  Sex: Male

DRUGS (9)
  1. METOPROLOL TARTRATE [Concomitant]
  2. ALLOPURINOL [Concomitant]
  3. ASPIRIN [Concomitant]
  4. VITAMIN D [Concomitant]
  5. FLUTICASONE PROPIONATE [Suspect]
     Indication: CHRONIC OBSTRUCTIVE PULMONARY DISEASE
     Route: 055
     Dates: start: 20110713
  6. METFORMIN HYDROCHLORIDE [Concomitant]
  7. GLIPIZIDE [Concomitant]
  8. SPIRIVA [Concomitant]
  9. VITAMIN B-12 [Concomitant]

REACTIONS (1)
  - OROPHARYNGEAL PAIN [None]
